FAERS Safety Report 7280364-4 (Version None)
Quarter: 2011Q1

REPORT INFORMATION
  Report Type: 
  Country: None (occurrence: None)
  Receive Date: 20110128
  Receipt Date: 20101231
  Transmission Date: 20110831
  Serious: Yes (Death)
  Sender: FDA-Public Use
  Company Number: AUR-APL-2011-00120

PATIENT
  Sex: Male

DRUGS (3)
  1. ALPRAZOLAM [Suspect]
  2. ACETAMINOPHEN AND OXYCODONE HCL [Suspect]
  3. PAROXETINE [Suspect]

REACTIONS (4)
  - TOXICITY TO VARIOUS AGENTS [None]
  - CARDIAC ARREST [None]
  - RESPIRATORY ARREST [None]
  - INTENTIONAL DRUG MISUSE [None]
